FAERS Safety Report 7509887-7 (Version None)
Quarter: 2011Q2

REPORT INFORMATION
  Report Type: 
  Country: None (occurrence: None)
  Receive Date: 20110519
  Receipt Date: 20110505
  Transmission Date: 20111010
  Serious: Yes (Other)
  Sender: FDA-Public Use
  Company Number: 2011MA005451

PATIENT
  Age: 86 Year
  Sex: Female

DRUGS (1)
  1. TRIAMCINOLONE ACETONIDE [Suspect]

REACTIONS (4)
  - INFARCTION [None]
  - CHORIORETINAL DISORDER [None]
  - BLINDNESS [None]
  - RETINAL DETACHMENT [None]
